FAERS Safety Report 5203058-5 (Version None)
Quarter: 2006Q4

REPORT INFORMATION
  Report Type: 
  Country: None (occurrence: None)
  Receive Date: 20061027
  Receipt Date: 20050720
  Transmission Date: 20070319
  Serious: Yes (Other)
  Sender: FDA-Public Use
  Company Number: HQWYE900417FEB06

PATIENT
  Age: 57 Year
  Sex: Female
  Weight: 56.75 kg

DRUGS (7)
  1. PREMARIN [Suspect]
     Indication: MENOPAUSAL SYMPTOMS
     Dosage: 0.3 MG AND 0.625 MG, ORAL
     Route: 048
     Dates: start: 19890606, end: 19930812
  2. ESTRACE [Suspect]
  3. ESTRADERM [Suspect]
  4. PROVERA [Suspect]
  5. NORETHINDRONE (NORETHISTERONE) [Concomitant]
  6. MAXIDEX (BENZALKONIUM CHLORIDE/DEXAMETHASONE/PHENYLMERCURIC NITRATE) [Concomitant]
  7. ATENOLOL [Concomitant]

REACTIONS (1)
  - BREAST CANCER [None]
